FAERS Safety Report 13175406 (Version 2)
Quarter: 2017Q1

REPORT INFORMATION
  Report Type: Report from Study
  Country: RO (occurrence: RO)
  Receive Date: 20170201
  Receipt Date: 20170208
  Transmission Date: 20170428
  Serious: Yes (Hospitalization, Other)
  Sender: FDA-Public Use
  Company Number: RO-ASTELLAS-2016US042027

PATIENT
  Sex: Female
  Weight: 60 kg

DRUGS (3)
  1. ERLOTINIB [Suspect]
     Active Substance: ERLOTINIB
     Indication: LUNG ADENOCARCINOMA
     Route: 048
     Dates: start: 201504, end: 201507
  2. ERLOTINIB [Suspect]
     Active Substance: ERLOTINIB
     Indication: METASTASES TO PLEURA
     Route: 048
     Dates: end: 201611
  3. ERLOTINIB [Suspect]
     Active Substance: ERLOTINIB
     Route: 048
     Dates: start: 201701

REACTIONS (7)
  - Osteoporosis [Not Recovered/Not Resolved]
  - Osteoarthritis [Unknown]
  - Intervertebral disc protrusion [Recovering/Resolving]
  - Oedema [Recovered/Resolved]
  - Hypersensitivity [Recovered/Resolved]
  - Spinal pain [Recovering/Resolving]
  - Gait disturbance [Recovering/Resolving]
